FAERS Safety Report 9678208 (Version 1)
Quarter: 2013Q4

REPORT INFORMATION
  Report Type: Spontaneous
  Country: US (occurrence: US)
  Receive Date: 20131108
  Receipt Date: 20131108
  Transmission Date: 20140711
  Serious: No
  Sender: FDA-Public Use
  Company Number: US-ROXANE LABORATORIES, INC.-2013-RO-01803RO

PATIENT
  Sex: Female

DRUGS (1)
  1. METHADONE [Suspect]
     Indication: BACK PAIN
     Dosage: 30 MG
     Route: 048

REACTIONS (1)
  - Feeling abnormal [Recovered/Resolved]
